FAERS Safety Report 26006940 (Version 1)
Quarter: 2025Q4

REPORT INFORMATION
  Report Type: Spontaneous
  Country: MA (occurrence: MA)
  Receive Date: 20251106
  Receipt Date: 20251106
  Transmission Date: 20260117
  Serious: Yes (Death)
  Sender: PFIZER
  Company Number: MA-PFIZER INC-202500216214

PATIENT

DRUGS (1)
  1. IBRANCE [Suspect]
     Active Substance: PALBOCICLIB
     Dosage: UNK
     Dates: start: 20250320, end: 202508

REACTIONS (1)
  - Death [Fatal]

NARRATIVE: CASE EVENT DATE: 20250801
